FAERS Safety Report 5333029-X (Version None)
Quarter: 2007Q1

REPORT INFORMATION
  Report Type: 
  Country: None (occurrence: None)
  Receive Date: 20070306
  Receipt Date: 20061030
  Transmission Date: 20070707
  Serious: Yes (Hospitalization)
  Sender: FDA-Public Use
  Company Number: A03200606535

PATIENT
  Age: 82 Year
  Sex: Female

DRUGS (12)
  1. PLAVIX [Suspect]
     Indication: ARTERIAL OCCLUSIVE DISEASE
     Dosage: 75 MG QD - ORAL
     Route: 048
     Dates: start: 20060601, end: 20060901
  2. ZOCOR [Suspect]
     Indication: HYPERCHOLESTEROLAEMIA
     Dosage: 40 MG HS - ORAL
     Route: 048
     Dates: start: 20060601, end: 20060901
  3. DILTIAZEM HYDROCHLORIDE [Concomitant]
  4. RAMIPRIL [Concomitant]
  5. MONTELUKAST SODIUM [Concomitant]
  6. GLIBENCLAMIDE [Concomitant]
  7. THEOPHYLLINE [Concomitant]
  8. PREDNISONE TAB [Concomitant]
  9. ESOMEPRAZOLE MAGNESIUM [Concomitant]
  10. ZOLPIDEM TARTRATE [Concomitant]
  11. FLUNISOLIDE [Concomitant]
  12. TORSEMIDE [Concomitant]

REACTIONS (3)
  - CONTUSION [None]
  - PULMONARY OEDEMA [None]
  - VISION BLURRED [None]
